FAERS Safety Report 10404017 (Version 1)
Quarter: 2014Q1

REPORT INFORMATION
  Report Type: Spontaneous
  Country: GB (occurrence: None)
  Receive Date: 20131010
  Receipt Date: 20131010
  Transmission Date: 20141002
  Serious: Yes (Other)
  Sender: FDA-Public Use
  Company Number: 2013S1000060

PATIENT
  Age: 50 Year
  Sex: Female

DRUGS (4)
  1. KRYSTEXXA [Suspect]
     Indication: PRODUCT USED FOR UNKNOWN INDICATION
     Route: 042
     Dates: start: 20130612, end: 20130612
  2. IV STEROIDS (CORTICOSTEROID NOS) [Concomitant]
  3. ORAL STEROIDS (CORTICOSTEROID NOS) [Concomitant]
  4. PARACETAMOL (PARACETAMOL) [Concomitant]

REACTIONS (1)
  - Infusion related reaction [None]
